FAERS Safety Report 7075113-9 (Version None)
Quarter: 2010Q4

REPORT INFORMATION
  Report Type: 
  Country: None (occurrence: None)
  Receive Date: 20101029
  Receipt Date: 20100318
  Transmission Date: 20110411
  Serious: No
  Sender: FDA-Public Use
  Company Number: US-WYE-H14244310

PATIENT
  Age: 88 Year
  Sex: Female
  Weight: 60.38 kg

DRUGS (1)
  1. ADVIL PM [Suspect]
     Indication: INSOMNIA
     Dosage: 1 CAPLET DAILY AT BEDTIME
     Route: 048
     Dates: start: 20100301, end: 20100317

REACTIONS (1)
  - DIZZINESS [None]
